FAERS Safety Report 6258333-2 (Version None)
Quarter: 2009Q3

REPORT INFORMATION
  Report Type: 
  Country: None (occurrence: None)
  Receive Date: 20090707
  Receipt Date: 20090624
  Transmission Date: 20100115
  Serious: Yes (Hospitalization)
  Sender: FDA-Public Use
  Company Number: PHHO2008US15235

PATIENT
  Sex: Male
  Weight: 88.5 kg

DRUGS (25)
  1. RAD 666 RAD+TAB [Suspect]
     Indication: RENAL CANCER
     Dosage: 10 MG DAILY
     Route: 048
     Dates: start: 20080920, end: 20081115
  2. RAD 666 RAD+TAB [Suspect]
     Dosage: 10 MG DAILY
     Route: 048
     Dates: start: 20081117, end: 20081212
  3. RAD 666 RAD+TAB [Suspect]
     Dosage: 10 MG DAILY
     Dates: start: 20081222, end: 20081227
  4. LISINOPRIL [Concomitant]
     Indication: HYPERTENSION
  5. ASPIRIN [Concomitant]
     Indication: PAIN
  6. GLIPIZIDE [Concomitant]
     Indication: DIABETES MELLITUS
  7. LORATADINE [Concomitant]
     Indication: MULTIPLE ALLERGIES
  8. SIMVASTATIN [Concomitant]
     Indication: BLOOD CHOLESTEROL
  9. PATANOL [Concomitant]
     Indication: MULTIPLE ALLERGIES
  10. VITAMIN B-12 [Concomitant]
     Indication: VITAMIN SUPPLEMENTATION
  11. ALLOPURINOL [Concomitant]
     Indication: GOUT
  12. FISH OIL [Concomitant]
  13. MAGNESIUM OXIDE [Concomitant]
     Indication: BLOOD MAGNESIUM DECREASED
  14. STOOL SOFTENER [Concomitant]
     Indication: CONSTIPATION
  15. SENOKOT [Concomitant]
  16. TYLENOL (CAPLET) [Concomitant]
     Indication: PAIN
  17. ANTINEOPLASTIC AGENTS [Concomitant]
     Indication: RENAL CANCER METASTATIC
  18. PAVATINE [Concomitant]
  19. KYTRIL [Concomitant]
  20. FLONASE [Concomitant]
  21. INSULIN [Concomitant]
  22. METOCLOPRAMIDE [Concomitant]
  23. IMODIUM [Concomitant]
  24. NEXIUM [Concomitant]
  25. CARTROL [Concomitant]

REACTIONS (18)
  - ABDOMINAL ADHESIONS [None]
  - ABDOMINAL PAIN [None]
  - ASCITES [None]
  - ASTHENIA [None]
  - CHILLS [None]
  - DEHYDRATION [None]
  - DIARRHOEA [None]
  - DIVERTICULUM [None]
  - FLUID OVERLOAD [None]
  - GASTRITIS [None]
  - GASTROINTESTINAL DISORDER [None]
  - HYPOTENSION [None]
  - LAPAROTOMY [None]
  - LEUKOCYTOSIS [None]
  - NAUSEA [None]
  - PLEURAL EFFUSION [None]
  - PYREXIA [None]
  - VOMITING [None]
